FAERS Safety Report 22037194 (Version 1)
Quarter: 2023Q1

REPORT INFORMATION
  Report Type: Spontaneous
  Country: US (occurrence: US)
  Receive Date: 20230226
  Receipt Date: 20230226
  Transmission Date: 20230418
  Serious: No
  Sender: FDA-Public Use
  Company Number: US-JNJFOC-20230247374

PATIENT
  Age: 5 Year
  Sex: Male

DRUGS (3)
  1. RISPERDAL [Suspect]
     Active Substance: RISPERIDONE
     Indication: Product used for unknown indication
     Dosage: VARYING DOSES 0.5 MG AND 0.75 MG IN MORNING AND 16:00
     Route: 048
     Dates: end: 200804
  2. RISPERDAL M-TAB [Suspect]
     Active Substance: RISPERIDONE
     Indication: Product used for unknown indication
     Dosage: IN MORNING AND 16:00
     Route: 048
  3. TENEX [Suspect]
     Active Substance: GUANFACINE HYDROCHLORIDE
     Indication: Attention deficit hyperactivity disorder
     Dosage: VARYING DOSES OF 0.5 MG AND 1 MG EVERY MORNING AND AT 16:00
     Route: 048
     Dates: end: 200804

REACTIONS (3)
  - Staring [Unknown]
  - Lethargy [Unknown]
  - Dysarthria [Unknown]

NARRATIVE: CASE EVENT DATE: 20080401
